FAERS Safety Report 7435353-3 (Version None)
Quarter: 2011Q2

REPORT INFORMATION
  Report Type: 
  Country: None (occurrence: None)
  Receive Date: 20110425
  Receipt Date: 20110418
  Transmission Date: 20111010
  Serious: Yes (Death, Hospitalization)
  Sender: FDA-Public Use
  Company Number: B0696323A

PATIENT
  Age: 61 Year
  Sex: Female

DRUGS (1)
  1. AVANDIA [Suspect]
     Indication: DIABETES MELLITUS
     Dosage: 4MG TWICE PER DAY
     Route: 048
     Dates: start: 19990101, end: 20020701

REACTIONS (4)
  - CONVULSION [None]
  - RESPIRATORY FAILURE [None]
  - NEUROLOGICAL SYMPTOM [None]
  - CEREBROVASCULAR ACCIDENT [None]
